FAERS Safety Report 6250128-9 (Version None)
Quarter: 2009Q2

REPORT INFORMATION
  Report Type: 
  Country: None (occurrence: None)
  Receive Date: 20090626
  Receipt Date: 20090622
  Transmission Date: 20091009
  Serious: No
  Sender: FDA-Public Use
  Company Number: 20096961

PATIENT
  Age: 7 Year
  Sex: Male

DRUGS (1)
  1. LIORESAL [Suspect]
     Indication: MUSCLE SPASTICITY
     Dosage: 190.0 MCG, DAILY, INTRATHECAL
     Route: 039

REACTIONS (4)
  - ERYTHEMA [None]
  - FLUCTUANCE [None]
  - IMPLANT SITE INFECTION [None]
  - MEDICAL DEVICE COMPLICATION [None]
